FAERS Safety Report 25301692 (Version 1)
Quarter: 2025Q2

REPORT INFORMATION
  Report Type: Spontaneous
  Country: US (occurrence: US)
  Receive Date: 20250512
  Receipt Date: 20250512
  Transmission Date: 20250717
  Serious: No
  Sender: MYLAN
  Company Number: US-MYLANLABS-2025M1032915

PATIENT
  Sex: Female
  Weight: 60.33 kg

DRUGS (12)
  1. TYRVAYA [Suspect]
     Active Substance: VARENICLINE TARTRATE
     Indication: Product used for unknown indication
     Dosage: 0.03 MILLIGRAM, BID (SPRAY IN EACH NOSTRIL TWICE A DAY)
     Dates: start: 20250211, end: 20250321
  2. TYRVAYA [Suspect]
     Active Substance: VARENICLINE TARTRATE
     Dosage: 0.03 MILLIGRAM, BID (SPRAY IN EACH NOSTRIL TWICE A DAY)
     Route: 045
     Dates: start: 20250211, end: 20250321
  3. TYRVAYA [Suspect]
     Active Substance: VARENICLINE TARTRATE
     Dosage: 0.03 MILLIGRAM, BID (SPRAY IN EACH NOSTRIL TWICE A DAY)
     Route: 045
     Dates: start: 20250211, end: 20250321
  4. TYRVAYA [Suspect]
     Active Substance: VARENICLINE TARTRATE
     Dosage: 0.03 MILLIGRAM, BID (SPRAY IN EACH NOSTRIL TWICE A DAY)
     Dates: start: 20250211, end: 20250321
  5. SALAGEN [Concomitant]
     Active Substance: PILOCARPINE HYDROCHLORIDE
  6. SALAGEN [Concomitant]
     Active Substance: PILOCARPINE HYDROCHLORIDE
     Route: 065
  7. SALAGEN [Concomitant]
     Active Substance: PILOCARPINE HYDROCHLORIDE
     Route: 065
  8. SALAGEN [Concomitant]
     Active Substance: PILOCARPINE HYDROCHLORIDE
  9. CEQUA [Concomitant]
     Active Substance: CYCLOSPORINE
  10. CEQUA [Concomitant]
     Active Substance: CYCLOSPORINE
     Route: 065
  11. CEQUA [Concomitant]
     Active Substance: CYCLOSPORINE
     Route: 065
  12. CEQUA [Concomitant]
     Active Substance: CYCLOSPORINE

REACTIONS (4)
  - Productive cough [Unknown]
  - Heart rate increased [Unknown]
  - Dyspnoea [Unknown]
  - Asthenia [Unknown]

NARRATIVE: CASE EVENT DATE: 20250101
